FAERS Safety Report 11179633 (Version 1)
Quarter: 2015Q2

REPORT INFORMATION
  Report Type: Spontaneous
  Country: BR (occurrence: BR)
  Receive Date: 20150611
  Receipt Date: 20150611
  Transmission Date: 20150821
  Serious: Yes (Other)
  Sender: FDA-Public Use
  Company Number: BR-009507513-1506BRA002111

PATIENT
  Sex: Male

DRUGS (17)
  1. DIGESAN [Concomitant]
     Active Substance: BROMOPRIDE
     Dosage: UNK
  2. TEGRETOL [Concomitant]
     Active Substance: CARBAMAZEPINE
     Dosage: UNK
  3. CANDICORT (BETAMETHASONE (+) KETOCONAZOLE) [Concomitant]
     Dosage: UNK
  4. ZYLORIC [Concomitant]
     Active Substance: ALLOPURINOL
     Dosage: UNK
  5. VITAMIN B COMPLEX [Concomitant]
     Active Substance: CYANOCOBALAMIN\DEXPANTHENOL\NIACINAMIDE\PYRIDOXINE HYDROCHLORIDE\RIBOFLAVIN 5^-PHOSPHATE SODIUM\THIAMINE HYDROCHLORIDE\VITAMIN B COMPLEX
     Dosage: UNK
  6. UNOPROST (DOXAZOSIN MESYLATE) [Concomitant]
     Dosage: UNK
  7. EPITEZAN [Concomitant]
     Dosage: UNK
  8. HEMAX (EPOETIN ALFA) [Concomitant]
     Dosage: UNK
  9. LANTUS [Concomitant]
     Active Substance: INSULIN GLARGINE
     Dosage: UNK
  10. ZOCOR [Suspect]
     Active Substance: SIMVASTATIN
     Dosage: UNK
     Route: 048
  11. ENDOFOLIN [Concomitant]
     Active Substance: FOLIC ACID
     Dosage: UNK
  12. LUFTAL [Concomitant]
     Dosage: UNK
  13. IMOSEC [Concomitant]
     Active Substance: LOPERAMIDE
     Dosage: UNK
  14. PANTOZOL [Concomitant]
     Active Substance: PANTOPRAZOLE SODIUM
     Dosage: UNK
  15. AAS [Concomitant]
     Active Substance: ASPIRIN
     Dosage: UNK
  16. SEROQUEL [Concomitant]
     Active Substance: QUETIAPINE FUMARATE
     Dosage: UNK
  17. DEPURA [Concomitant]
     Active Substance: CHOLECALCIFEROL
     Dosage: UNK

REACTIONS (9)
  - Cerebrovascular accident [Unknown]
  - Chronic kidney disease [Not Recovered/Not Resolved]
  - Nephrectomy [Unknown]
  - Hypertension [Not Recovered/Not Resolved]
  - Dementia Alzheimer^s type [Not Recovered/Not Resolved]
  - Thrombosis [Unknown]
  - Transurethral prostatectomy [Unknown]
  - Diabetes mellitus [Not Recovered/Not Resolved]
  - Femur fracture [Unknown]

NARRATIVE: CASE EVENT DATE: 1989
